FAERS Safety Report 19013456 (Version 1)
Quarter: 2021Q1

REPORT INFORMATION
  Report Type: Spontaneous
  Country: US (occurrence: US)
  Receive Date: 20210315
  Receipt Date: 20210315
  Transmission Date: 20210420
  Serious: No
  Sender: FDA-Public Use
  Company Number: US-ELI_LILLY_AND_COMPANY-US202103004323

PATIENT
  Sex: Female

DRUGS (1)
  1. BAQSIMI [Suspect]
     Active Substance: GLUCAGON
     Indication: HYPOGLYCAEMIA
     Dosage: 1 DOSAGE FORM, UNKNOWN
     Route: 045

REACTIONS (2)
  - Nasal discomfort [Unknown]
  - Headache [Unknown]
